FAERS Safety Report 7831158-X (Version None)
Quarter: 2011Q4

REPORT INFORMATION
  Report Type: 
  Country: None (occurrence: None)
  Receive Date: 20111021
  Receipt Date: 20111014
  Transmission Date: 20120403
  Serious: Yes (Other)
  Sender: FDA-Public Use
  Company Number: CA-ROCHE-GNE316609

PATIENT
  Sex: Male

DRUGS (1)
  1. XOLAIR [Suspect]
     Indication: ASTHMA
     Route: 058
     Dates: start: 20090424, end: 20110323

REACTIONS (3)
  - BLOOD PRESSURE INCREASED [None]
  - THROMBOCYTOPENIA [None]
  - HEART RATE INCREASED [None]
